FAERS Safety Report 20384417 (Version 1)
Quarter: 2022Q1

REPORT INFORMATION
  Report Type: Report from Study
  Country: NL (occurrence: NL)
  Receive Date: 20220127
  Receipt Date: 20220127
  Transmission Date: 20220423
  Serious: Yes (Hospitalization, Other)
  Sender: FDA-Public Use
  Company Number: NL-JNJFOC-20220143288

PATIENT
  Age: 70 Year
  Sex: Male

DRUGS (1)
  1. REMICADE [Suspect]
     Active Substance: INFLIXIMAB
     Indication: Colitis ulcerative
     Route: 042

REACTIONS (9)
  - Colitis ulcerative [Unknown]
  - Pancytopenia [Unknown]
  - Cutaneous vasculitis [Unknown]
  - Pneumococcal sepsis [Unknown]
  - Raynaud^s phenomenon [Unknown]
  - Pleurisy [Unknown]
  - Dermatitis [Unknown]
  - Cyanosis [Unknown]
  - Lung disorder [Unknown]
